FAERS Safety Report 16859195 (Version 2)
Quarter: 2019Q4

REPORT INFORMATION
  Report Type: Spontaneous
  Country: CN (occurrence: CN)
  Receive Date: 20190926
  Receipt Date: 20191002
  Transmission Date: 20200122
  Serious: Yes (Other)
  Sender: FDA-Public Use
  Company Number: CN-ASTRAZENECA-2019SF36056

PATIENT
  Age: 69 Year
  Sex: Male
  Weight: 65 kg

DRUGS (2)
  1. TAGRISSO [Concomitant]
     Active Substance: OSIMERTINIB
  2. IRESSA [Suspect]
     Active Substance: GEFITINIB
     Indication: NON-SMALL CELL LUNG CANCER
     Dosage: ONCE A DAY
     Route: 048

REACTIONS (5)
  - Malignant neoplasm progression [Unknown]
  - Dyspnoea [Unknown]
  - Pleural effusion [Unknown]
  - Chest discomfort [Unknown]
  - Drug resistance [Unknown]

NARRATIVE: CASE EVENT DATE: 20190617
